FAERS Safety Report 15115905 (Version 3)
Quarter: 2019Q2

REPORT INFORMATION
  Report Type: Spontaneous
  Country: FR (occurrence: FR)
  Receive Date: 20180706
  Receipt Date: 20190416
  Transmission Date: 20190711
  Serious: Yes (Death, Other)
  Sender: FDA-Public Use
  Company Number: FR-GLAXOSMITHKLINE-FR2018GSK093313

PATIENT
  Age: 58 Year
  Sex: Female

DRUGS (2)
  1. ACYCLOVIR. [Suspect]
     Active Substance: ACYCLOVIR
     Indication: HEPATITIS
     Dosage: UNK
     Route: 065
  2. N-ACETYLCYSTEINE [Suspect]
     Active Substance: ACETYLCYSTEINE
     Indication: HEPATITIS
     Dosage: UNK
     Route: 065

REACTIONS (5)
  - Hepatitis fulminant [Unknown]
  - Multiple organ dysfunction syndrome [Fatal]
  - Drug resistance [Unknown]
  - Systemic candida [Fatal]
  - Drug ineffective [Unknown]
